FAERS Safety Report 13703600 (Version 4)
Quarter: 2018Q1

REPORT INFORMATION
  Report Type: Report from Study
  Country: US (occurrence: US)
  Receive Date: 20170629
  Receipt Date: 20180328
  Transmission Date: 20180508
  Serious: Yes (Hospitalization, Other)
  Sender: FDA-Public Use
  Company Number: PHEH2017US019806

PATIENT
  Age: 85 Year
  Sex: Male

DRUGS (2)
  1. TASIGNA [Suspect]
     Active Substance: NILOTINIB
     Dosage: UNK
     Route: 065
  2. TASIGNA [Suspect]
     Active Substance: NILOTINIB
     Indication: CHRONIC MYELOID LEUKAEMIA
     Dosage: UNK, QD
     Route: 048
     Dates: start: 201312

REACTIONS (9)
  - Myocardial infarction [Recovered/Resolved]
  - Chest discomfort [Unknown]
  - Memory impairment [Not Recovered/Not Resolved]
  - Second primary malignancy [Unknown]
  - Deafness [Unknown]
  - Skin cancer [Recovering/Resolving]
  - Neoplasm malignant [Unknown]
  - Dementia [Not Recovered/Not Resolved]
  - Hypoacusis [Unknown]

NARRATIVE: CASE EVENT DATE: 201406
